FAERS Safety Report 7931102-0 (Version None)
Quarter: 2011Q4

REPORT INFORMATION
  Report Type: 
  Country: None (occurrence: None)
  Receive Date: 20111121
  Receipt Date: 20111107
  Transmission Date: 20120403
  Serious: Yes (Life-Threatening, Other)
  Sender: FDA-Public Use
  Company Number: US-ROCHE-1011627

PATIENT
  Sex: Female

DRUGS (5)
  1. HERCEPTIN [Suspect]
     Route: 042
  2. PACLITAXEL [Suspect]
     Indication: BREAST CANCER METASTATIC
     Route: 042
     Dates: start: 20080922
  3. HERCEPTIN [Suspect]
     Indication: BREAST CANCER METASTATIC
     Dosage: LOADING DOSE
     Route: 042
     Dates: start: 20080922
  4. CARBOPLATIN [Suspect]
     Indication: BREAST CANCER METASTATIC
     Dosage: 2 AUC
     Route: 042
     Dates: start: 20080922
  5. AVASTIN [Suspect]
     Indication: BREAST CANCER METASTATIC
     Dosage: DOSE BLINDED
     Route: 042
     Dates: start: 20080922

REACTIONS (3)
  - LEFT VENTRICULAR DYSFUNCTION [None]
  - WOUND DEHISCENCE [None]
  - EMBOLISM [None]
